FAERS Safety Report 7495937-3 (Version None)
Quarter: 2011Q2

REPORT INFORMATION
  Report Type: 
  Country: None (occurrence: None)
  Receive Date: 20110523
  Receipt Date: 20110510
  Transmission Date: 20111010
  Serious: Yes (Hospitalization)
  Sender: FDA-Public Use
  Company Number: BR-JNJFOC-20110508143

PATIENT
  Sex: Female
  Weight: 64 kg

DRUGS (8)
  1. OMEPRAZOLE [Concomitant]
  2. ACETAMINOPHEN [Concomitant]
  3. TRAMADOL HYDROCHLORIDE [Suspect]
     Indication: PRODUCT USED FOR UNKNOWN INDICATION
     Route: 065
  4. RITUXAN [Concomitant]
     Indication: RHEUMATOID ARTHRITIS
     Route: 042
     Dates: start: 20100420, end: 20100505
  5. CLONAZEPAM [Concomitant]
  6. BETAMETHASONE [Concomitant]
  7. SULFASALAZINE [Concomitant]
  8. PREDNISONE [Concomitant]

REACTIONS (2)
  - HYPERSENSITIVITY [None]
  - ABSCESS LIMB [None]
